FAERS Safety Report 7956213-5 (Version None)
Quarter: 2011Q4

REPORT INFORMATION
  Report Type: 
  Country: None (occurrence: None)
  Receive Date: 20111205
  Receipt Date: 20111130
  Transmission Date: 20120403
  Serious: Yes (Hospitalization, Other)
  Sender: FDA-Public Use
  Company Number: US-BAYER-2011-091886

PATIENT
  Age: 59 Year
  Sex: Male

DRUGS (2)
  1. NEXAVAR [Suspect]
     Dosage: UNK
     Route: 048
     Dates: start: 20111001
  2. NEXAVAR [Suspect]
     Indication: HEPATIC NEOPLASM MALIGNANT
     Dosage: 200 MG, BID
     Route: 048
     Dates: start: 20110919, end: 20110926

REACTIONS (8)
  - FATIGUE [None]
  - DIARRHOEA [None]
  - ASTHENIA [None]
  - HYPOPHAGIA [None]
  - BLOOD SODIUM DECREASED [None]
  - DIZZINESS [None]
  - ABASIA [None]
  - VOMITING [None]
